FAERS Safety Report 10438719 (Version 1)
Quarter: 2014Q3

REPORT INFORMATION
  Report Type: Spontaneous
  Country: US (occurrence: US)
  Receive Date: 20140908
  Receipt Date: 20140908
  Transmission Date: 20150326
  Serious: No
  Sender: FDA-Public Use
  Company Number: US-BRISTOL-MYERS SQUIBB COMPANY-19880459

PATIENT
  Age: 57 Year
  Sex: Male
  Weight: 88.43 kg

DRUGS (4)
  1. ABILIFY [Suspect]
     Active Substance: ARIPIPRAZOLE
     Indication: ATTENTION DEFICIT/HYPERACTIVITY DISORDER
     Dosage: HALF OF A 2MG TABLET DAILY
     Dates: start: 201308
  2. CYMBALTA [Concomitant]
     Active Substance: DULOXETINE HYDROCHLORIDE
  3. VYVANSE [Concomitant]
     Active Substance: LISDEXAMFETAMINE DIMESYLATE
  4. CELEBREX [Concomitant]
     Active Substance: CELECOXIB

REACTIONS (4)
  - Weight increased [Unknown]
  - Off label use [Unknown]
  - Wrong technique in drug usage process [Unknown]
  - Urticaria [Unknown]

NARRATIVE: CASE EVENT DATE: 2013
